FAERS Safety Report 24208401 (Version 1)
Quarter: 2024Q3

REPORT INFORMATION
  Report Type: Spontaneous
  Country: GB (occurrence: GB)
  Receive Date: 20240814
  Receipt Date: 20240814
  Transmission Date: 20241017
  Serious: Yes (Other)
  Sender: AUROBINDO
  Company Number: GB-MHRA-TPP19478662C21992317YC1722418691609

PATIENT
  Age: 75 Year
  Sex: Female
  Weight: 67 kg

DRUGS (8)
  1. AMLODIPINE BESYLATE [Suspect]
     Active Substance: AMLODIPINE BESYLATE
     Indication: Hypertension
     Dosage: 10 MILLIGRAM, ONCE A DAY
     Route: 065
     Dates: start: 20240515
  2. RAMIPRIL [Concomitant]
     Active Substance: RAMIPRIL
     Indication: Product used for unknown indication
     Dosage: 1 DOSAGE FORM, ONCE A DAY
     Route: 065
  3. ATORVASTATIN [Concomitant]
     Active Substance: ATORVASTATIN
     Indication: Product used for unknown indication
     Dosage: 1 DOSAGE FORM, ONCE A DAY
     Route: 065
     Dates: start: 20240426
  4. FLUTICASONE FUROATE [Concomitant]
     Active Substance: FLUTICASONE FUROATE
     Indication: Product used for unknown indication
     Dosage: USE 1-2 SPRAYS PER NOSTRIL ONCE DAILY
     Route: 045
     Dates: start: 20240426
  5. Hylo night [Concomitant]
     Indication: Product used for unknown indication
     Dosage: TO BOTH EYES AT NIGHT
     Dates: start: 20240426
  6. LEVOTHYROXINE [Concomitant]
     Active Substance: LEVOTHYROXINE\LEVOTHYROXINE SODIUM
     Indication: Product used for unknown indication
     Dosage: 1 DOSAGE FORM, ONCE A DAY (EACH MORNING)
     Route: 065
     Dates: start: 20240426
  7. HYALURONATE SODIUM\TREHALOSE [Concomitant]
     Active Substance: HYALURONATE SODIUM\TREHALOSE
     Indication: Product used for unknown indication
     Dosage: 2 DOSAGE FORM, 3 TIMES A DAY (ONE DROP IN EACH EYE)
     Dates: start: 20240426
  8. VAGIFEM [Concomitant]
     Active Substance: ESTRADIOL
     Indication: Product used for unknown indication
     Dosage: USE TWICE WEEKLY OR EVEN ALTERNATE DAYS
     Route: 065
     Dates: start: 20240426

REACTIONS (2)
  - Joint swelling [Recovering/Resolving]
  - Peripheral swelling [Unknown]
